FAERS Safety Report 9387877 (Version 1)
Quarter: 2013Q3

REPORT INFORMATION
  Report Type: Spontaneous
  Country: US (occurrence: None)
  Receive Date: 20130701
  Receipt Date: 20130701
  Transmission Date: 20140515
  Serious: Yes (Other)
  Sender: FDA-Public Use
  Company Number: ACO_36980_2013

PATIENT
  Age: 53 Year
  Sex: Female

DRUGS (1)
  1. AMPYRA [Suspect]

REACTIONS (1)
  - Convulsion [None]
